FAERS Safety Report 18972936 (Version 1)
Quarter: 2021Q1

REPORT INFORMATION
  Report Type: Spontaneous
  Country: US (occurrence: US)
  Receive Date: 20210304
  Receipt Date: 20210304
  Transmission Date: 20210420
  Serious: Yes (Hospitalization)
  Sender: FDA-Public Use
  Company Number: None

PATIENT
  Sex: Male

DRUGS (1)
  1. NORDITROPIN [Suspect]
     Active Substance: SOMATROPIN
     Indication: INTRACRANIAL MASS
     Route: 058
     Dates: start: 202001

REACTIONS (4)
  - Chest pain [None]
  - Headache [None]
  - Blood pressure increased [None]
  - Myocardial necrosis marker increased [None]
